FAERS Safety Report 16991555 (Version 1)
Quarter: 2019Q4

REPORT INFORMATION
  Report Type: Spontaneous
  Country: US (occurrence: US)
  Receive Date: 20191104
  Receipt Date: 20191104
  Transmission Date: 20200122
  Serious: No
  Sender: FDA-Public Use
  Company Number: US-BAUSCH-BL-2019-057645

PATIENT
  Age: 70 Year
  Sex: Female

DRUGS (2)
  1. LUMIFY [Suspect]
     Active Substance: BRIMONIDINE TARTRATE
     Indication: OCULAR HYPERAEMIA
     Dosage: 1 DROP IN EACH EYE ONCE DAILY IN THE MORNING
     Route: 047
     Dates: start: 201909, end: 2019
  2. LUMIFY [Suspect]
     Active Substance: BRIMONIDINE TARTRATE
     Dosage: 1 DROP IN EACH EYE IN THE MORNING (SECOND BOTTLE)
     Route: 047
     Dates: start: 2019, end: 201910

REACTIONS (5)
  - Asthenopia [Not Recovered/Not Resolved]
  - Vision blurred [Not Recovered/Not Resolved]
  - Product quality issue [Unknown]
  - Therapeutic product effect decreased [Unknown]
  - Lacrimation increased [Not Recovered/Not Resolved]

NARRATIVE: CASE EVENT DATE: 2019
